FAERS Safety Report 7662898-3 (Version None)
Quarter: 2011Q3

REPORT INFORMATION
  Report Type: 
  Country: None (occurrence: None)
  Receive Date: 20110805
  Receipt Date: 20100917
  Transmission Date: 20111222
  Serious: No
  Sender: FDA-Public Use
  Company Number: US-ABBOTT-10P-163-0671860-00

PATIENT
  Sex: Male
  Weight: 147.55 kg

DRUGS (5)
  1. SYNTHROID [Concomitant]
     Indication: PRODUCT USED FOR UNKNOWN INDICATION
  2. HYDROCHLOROTHIAZIDE [Concomitant]
     Indication: PRODUCT USED FOR UNKNOWN INDICATION
  3. MULTI-VITAMIN [Concomitant]
     Indication: PRODUCT USED FOR UNKNOWN INDICATION
  4. NIASPAN [Suspect]
     Indication: HIGH DENSITY LIPOPROTEIN DECREASED
     Dosage: AT BEDTIME
     Dates: start: 20100201, end: 20100801
  5. ASPIRIN [Concomitant]
     Indication: PRODUCT USED FOR UNKNOWN INDICATION

REACTIONS (1)
  - HIGH DENSITY LIPOPROTEIN DECREASED [None]
